FAERS Safety Report 4320234-4 (Version None)
Quarter: 2004Q1

REPORT INFORMATION
  Report Type: 
  Country: None (occurrence: None)
  Receive Date: 20040317
  Receipt Date: 20040303
  Transmission Date: 20041129
  Serious: Yes (Hospitalization)
  Sender: FDA-Public Use
  Company Number: 2004014984

PATIENT
  Age: 35 Year
  Sex: Male

DRUGS (1)
  1. VIAGRA [Suspect]
     Indication: ILL-DEFINED DISORDER
     Dosage: ORAL
     Route: 048

REACTIONS (2)
  - BLINDNESS TRANSIENT [None]
  - SKIN DISCOLOURATION [None]
